FAERS Safety Report 9988570 (Version 1)
Quarter: 2014Q1

REPORT INFORMATION
  Report Type: Spontaneous
  Country: PH (occurrence: PH)
  Receive Date: 20140310
  Receipt Date: 20140310
  Transmission Date: 20141002
  Serious: Yes (Death)
  Sender: FDA-Public Use
  Company Number: PH-009507513-1403PHL003951

PATIENT
  Age: 64 Year
  Sex: Female

DRUGS (1)
  1. COZAAR [Suspect]
     Dosage: 100 MG, QD
     Route: 048
     Dates: start: 20130524

REACTIONS (1)
  - Death [Fatal]
